FAERS Safety Report 9798181 (Version 1)
Quarter: 2014Q1

REPORT INFORMATION
  Report Type: Spontaneous
  Country: US (occurrence: None)
  Receive Date: 20140103
  Receipt Date: 20140103
  Transmission Date: 20141002
  Serious: No
  Sender: FDA-Public Use
  Company Number: None

PATIENT
  Age: 33 Year
  Sex: Female

DRUGS (2)
  1. METHYLPHENIDATE [Suspect]
     Indication: ATTENTION DEFICIT/HYPERACTIVITY DISORDER
     Dosage: ONE TABLET
     Route: 048
     Dates: start: 20131209, end: 20131227
  2. METHYLPHENIDATE [Suspect]
     Indication: THERAPY CESSATION
     Dosage: ONE TABLET
     Route: 048
     Dates: start: 20131209, end: 20131227

REACTIONS (3)
  - Therapy cessation [None]
  - Sleep attacks [None]
  - Impaired driving ability [None]
